FAERS Safety Report 14586243 (Version 2)
Quarter: 2018Q1

REPORT INFORMATION
  Report Type: Spontaneous
  Country: GB (occurrence: GB)
  Receive Date: 20180301
  Receipt Date: 20180313
  Transmission Date: 20180509
  Serious: Yes (Other)
  Sender: FDA-Public Use
  Company Number: GB-BRISTOL-MYERS SQUIBB COMPANY-BMS-2018-016778

PATIENT
  Age: 77 Year

DRUGS (1)
  1. ELIQUIS [Suspect]
     Active Substance: APIXABAN
     Indication: CEREBROVASCULAR ACCIDENT PROPHYLAXIS
     Dosage: 5 MG A DAY
     Route: 065

REACTIONS (6)
  - Lissencephaly [Unknown]
  - Encephalocele [Unknown]
  - Dysplasia [Unknown]
  - Rash [Unknown]
  - Urticaria [Unknown]
  - Hydrocephalus [Unknown]
